FAERS Safety Report 4639800-1 (Version None)
Quarter: 2005Q2

REPORT INFORMATION
  Report Type: 
  Country: None (occurrence: None)
  Receive Date: 20050415
  Receipt Date: 20050401
  Transmission Date: 20051028
  Serious: Yes (Other)
  Sender: FDA-Public Use
  Company Number: WAES 0311USA02425

PATIENT
  Age: 83 Year
  Sex: Female

DRUGS (14)
  1. SINGULAIR [Suspect]
     Indication: ASTHMA EXACERBATION PROPHYLAXIS
     Dosage: 10 MG/DAILY
     Route: 048
     Dates: start: 20030930, end: 20031007
  2. NORVASC [Concomitant]
  3. [THERAPY UNSPECIFIED] [Concomitant]
  4. CALCITRIOL [Concomitant]
  5. BUDENOSIDE [Concomitant]
  6. DOXAZOSIN MESYLATE [Concomitant]
  7. FAMOTIDINE [Concomitant]
  8. FUROSEMIDE [Concomitant]
  9. ISOSORBIDE DINITRATE [Concomitant]
  10. LEVOTHYROXINE SODIUM [Concomitant]
  11. METILDIGOXIN [Concomitant]
  12. THEOPHYLLINE [Concomitant]
  13. VOGLIBOSE [Concomitant]
  14. WARFARIN POTASSIUM [Concomitant]

REACTIONS (3)
  - DIFFICULTY IN WALKING [None]
  - DIZZINESS [None]
  - HEADACHE [None]
